FAERS Safety Report 11253562 (Version 2)
Quarter: 2015Q3

REPORT INFORMATION
  Report Type: Spontaneous
  Country: IT (occurrence: IT)
  Receive Date: 20150709
  Receipt Date: 20150803
  Transmission Date: 20151125
  Serious: Yes (Other)
  Sender: FDA-Public Use
  Company Number: IT-AUROBINDO-AUR-APL-2015-05645

PATIENT
  Age: 45 Year
  Sex: Male

DRUGS (2)
  1. SERTRALINE [Suspect]
     Active Substance: SERTRALINE HYDROCHLORIDE
     Indication: DEPRESSION
     Route: 065
  2. PANTOPRAZOLE [Suspect]
     Active Substance: PANTOPRAZOLE SODIUM
     Indication: OESOPHAGITIS
     Route: 065

REACTIONS (7)
  - Diarrhoea [Recovered/Resolved]
  - Colitis [Recovering/Resolving]
  - Faecal calprotectin [Recovering/Resolving]
  - Erythema [Recovering/Resolving]
  - Abdominal pain [Recovered/Resolved]
  - Colitis microscopic [Recovering/Resolving]
  - Polyp [Recovering/Resolving]
